FAERS Safety Report 9127228 (Version 2)
Quarter: 2013Q2

REPORT INFORMATION
  Report Type: Spontaneous
  Country: JP (occurrence: JP)
  Receive Date: 20130228
  Receipt Date: 20130404
  Transmission Date: 20140414
  Serious: Yes (Other)
  Sender: FDA-Public Use
  Company Number: JP-PFIZER INC-2012330171

PATIENT
  Age: 40 Year
  Sex: Male

DRUGS (1)
  1. INLYTA [Suspect]
     Dosage: 10 MG, 2X/DAY
     Route: 048
     Dates: start: 20121029

REACTIONS (2)
  - Cardiac failure [Unknown]
  - Blood albumin decreased [Not Recovered/Not Resolved]
